FAERS Safety Report 8186977-X (Version None)
Quarter: 2012Q1

REPORT INFORMATION
  Report Type: 
  Country: None (occurrence: None)
  Receive Date: 20120213
  Receipt Date: 20111116
  Transmission Date: 20120608
  Serious: No
  Sender: FDA-Public Use
  Company Number: 1000025555

PATIENT
  Sex: Male

DRUGS (1)
  1. SAVELLA [Suspect]
     Dosage: 25 MG DAILY, ORAL
     Route: 048

REACTIONS (1)
  - POLLAKIURIA [None]
